FAERS Safety Report 12911632 (Version 4)
Quarter: 2017Q2

REPORT INFORMATION
  Report Type: Report from Study
  Country: JP (occurrence: JP)
  Receive Date: 20161104
  Receipt Date: 20170623
  Transmission Date: 20170830
  Serious: Yes (Death, Life-Threatening, Other)
  Sender: FDA-Public Use
  Company Number: PHJP2016JP031498

PATIENT
  Age: 64 Year
  Sex: Female

DRUGS (6)
  1. BORTEZOMIB [Suspect]
     Active Substance: BORTEZOMIB
     Indication: PLASMA CELL MYELOMA
     Dosage: 1.0 MG/M2, QW2
     Route: 058
     Dates: start: 20160623, end: 20160725
  2. OXYCODONE [Concomitant]
     Active Substance: OXYCODONE
     Indication: PLASMA CELL MYELOMA
     Dosage: 10 MG, UNK
     Route: 048
  3. MAGMITT [Concomitant]
     Active Substance: MAGNESIUM OXIDE
     Indication: CONSTIPATION
     Dosage: 1 G, UNK
     Route: 048
  4. FARYDAK [Suspect]
     Active Substance: PANOBINOSTAT
     Indication: PLASMA CELL MYELOMA
     Dosage: 10 MG, QD
     Route: 048
     Dates: start: 20160623, end: 20160725
  5. DEXAMETHASONE. [Suspect]
     Active Substance: DEXAMETHASONE
     Indication: PLASMA CELL MYELOMA
     Dosage: UNK
     Route: 065
     Dates: start: 20160623, end: 20160725
  6. DOMPERIDONE [Concomitant]
     Active Substance: DOMPERIDONE
     Indication: PLASMA CELL MYELOMA
     Dosage: 30 MG, UNK
     Route: 048

REACTIONS (19)
  - Dyspnoea [Fatal]
  - Hypokalaemia [Recovered/Resolved]
  - Hypocalcaemia [Recovered/Resolved]
  - Pulmonary oedema [Not Recovered/Not Resolved]
  - Anaemia [Not Recovered/Not Resolved]
  - Drug ineffective [Unknown]
  - Pneumonia fungal [Fatal]
  - Malignant neoplasm progression [Fatal]
  - Metastases to central nervous system [Unknown]
  - C-reactive protein increased [Fatal]
  - Neutropenia [Recovered/Resolved]
  - Depressed level of consciousness [Unknown]
  - Depression [Unknown]
  - Platelet count decreased [Recovered/Resolved]
  - Plasma cell myeloma [Fatal]
  - Cardiac failure congestive [Not Recovered/Not Resolved]
  - Haemoglobin decreased [Unknown]
  - Back pain [Unknown]
  - Nutritional condition abnormal [Not Recovered/Not Resolved]

NARRATIVE: CASE EVENT DATE: 20160725
